FAERS Safety Report 6155662-8 (Version None)
Quarter: 2009Q2

REPORT INFORMATION
  Report Type: 
  Country: None (occurrence: None)
  Receive Date: 20090415
  Receipt Date: 20090330
  Transmission Date: 20091009
  Serious: Yes (Death)
  Sender: FDA-Public Use
  Company Number: TR-ELI_LILLY_AND_COMPANY-TR200904002927

PATIENT
  Age: 55 Year
  Sex: Male

DRUGS (2)
  1. HUMULIN N [Suspect]
     Indication: DIABETES MELLITUS
     Dosage: 12 U, EACH EVENING
     Route: 058
     Dates: start: 20070801
  2. HUMULIN R [Suspect]
     Indication: DIABETES MELLITUS
     Dosage: 12 U, 3/D
     Route: 058
     Dates: start: 20070801

REACTIONS (1)
  - HEPATIC FAILURE [None]
